FAERS Safety Report 12903035 (Version 1)
Quarter: 2016Q4

REPORT INFORMATION
  Report Type: Report from Study
  Country: ES (occurrence: ES)
  Receive Date: 20161102
  Receipt Date: 20161102
  Transmission Date: 20170207
  Serious: Yes (Disabling)
  Sender: FDA-Public Use
  Company Number: ES-TEVA-709305ACC

PATIENT
  Age: 32 Year
  Sex: Female

DRUGS (7)
  1. BENDAMUSTINE HYDROCHLORIDE. [Suspect]
     Active Substance: BENDAMUSTINE HYDROCHLORIDE
     Route: 042
     Dates: start: 20120810
  2. RITUXIMAB [Suspect]
     Active Substance: RITUXIMAB
     Indication: NON-HODGKIN^S LYMPHOMA UNSPECIFIED HISTOLOGY INDOLENT
     Dosage: CYCLIC
     Route: 042
     Dates: start: 20120321
  3. KREON                              /00014701/ [Concomitant]
     Active Substance: PANCRELIPASE
     Indication: INTESTINAL VILLI ATROPHY
     Route: 065
     Dates: start: 20151214
  4. PREDNISONA [Concomitant]
     Active Substance: PREDNISONE
     Indication: INTESTINAL VILLI ATROPHY
     Route: 065
  5. RITUXIMAB [Suspect]
     Active Substance: RITUXIMAB
     Route: 042
     Dates: start: 20140702
  6. LEVOGASTROL [Concomitant]
     Indication: INTESTINAL VILLI ATROPHY
     Route: 065
  7. BENDAMUSTINE HYDROCHLORIDE. [Suspect]
     Active Substance: BENDAMUSTINE HYDROCHLORIDE
     Indication: NON-HODGKIN^S LYMPHOMA UNSPECIFIED HISTOLOGY INDOLENT
     Dosage: CYCLIC
     Route: 042
     Dates: start: 20120321

REACTIONS (1)
  - Hypogammaglobulinaemia [Not Recovered/Not Resolved]

NARRATIVE: CASE EVENT DATE: 20160713
